FAERS Safety Report 21091911 (Version 24)
Quarter: 2024Q1

REPORT INFORMATION
  Report Type: Report from Study
  Country: PT (occurrence: PT)
  Receive Date: 20220717
  Receipt Date: 20240207
  Transmission Date: 20240409
  Serious: Yes (Disabling, Other)
  Sender: FDA-Public Use
  Company Number: PT-ABBVIE-22K-130-4440998-00

PATIENT
  Age: 76 Year
  Sex: Female

DRUGS (34)
  1. CARBIDOPA\LEVODOPA [Suspect]
     Active Substance: CARBIDOPA\LEVODOPA
     Indication: Parkinson^s disease
     Dosage: 20 MG + 5 MG (VIA PEG)?FREQUENCY TEXT: MORN:20CC;MAINT:12.1CC/H;EXTRA:4.5CC
     Route: 050
     Dates: start: 20231026, end: 20231105
  2. CARBIDOPA\LEVODOPA [Suspect]
     Active Substance: CARBIDOPA\LEVODOPA
     Dosage: 20 MG + 5 MG (PEG)?FREQUENCY TEXT: M:15CC;MA:9.5(8-22)4.3(22-8)CC/H;X:4.5CC
     Route: 050
     Dates: start: 20231106, end: 20231108
  3. CARBIDOPA\LEVODOPA [Suspect]
     Active Substance: CARBIDOPA\LEVODOPA
     Dosage: 20 MG PLUS 5 MG, ?FREQUENCY TEXT: MORN:15.3CC;MAINT:11.5CC/H;EXTRA:4CC
     Route: 050
     Dates: start: 20220617, end: 20220619
  4. CARBIDOPA\LEVODOPA [Suspect]
     Active Substance: CARBIDOPA\LEVODOPA
     Dosage: 20 MG + 5 MG?FREQUENCY TEXT: MORN:20CC;MAINT:11.8CC/H;EXTRA:4CC
     Route: 050
     Dates: start: 20230220, end: 20230330
  5. CARBIDOPA\LEVODOPA [Suspect]
     Active Substance: CARBIDOPA\LEVODOPA
     Dosage: 20 MG + 5 MG (PEG)
     Route: 050
     Dates: start: 20230329, end: 20230530
  6. CARBIDOPA\LEVODOPA [Suspect]
     Active Substance: CARBIDOPA\LEVODOPA
     Dosage: 20 MG + 5 MG, ?FREQUENCY TEXT: MORN:18.5CC;MAINT:11.8CC/H;EXTRA:4CC
     Route: 050
     Dates: start: 20220620, end: 20230219
  7. CARBIDOPA\LEVODOPA [Suspect]
     Active Substance: CARBIDOPA\LEVODOPA
     Dosage: 20 MG + 5 MG
     Route: 050
     Dates: start: 20231114, end: 20231115
  8. CARBIDOPA\LEVODOPA [Suspect]
     Active Substance: CARBIDOPA\LEVODOPA
     Dosage: 20 MG + 5 MG, FREQUENCY TEXT: MAIN:11.5CC(8-22)4.9CC(22-8)CC/H;X:5.5CC
     Route: 050
     Dates: start: 20231116
  9. CARBIDOPA\LEVODOPA [Suspect]
     Active Substance: CARBIDOPA\LEVODOPA
     Dosage: 20 MG + 5 MG (VIA PEG), ?FREQUENCY TEXT: MORN:20CC;MAINT:11.8CC/H;EXTRA:4CC
     Route: 050
     Dates: start: 20230531, end: 20231025
  10. CARBIDOPA\LEVODOPA [Suspect]
     Active Substance: CARBIDOPA\LEVODOPA
     Dosage: FREQUENCY TEXT: MAIN:10CC(8-22)5CC(22-8)CC/H;X:4.5CC
     Route: 050
  11. CARBIDOPA\LEVODOPA [Suspect]
     Active Substance: CARBIDOPA\LEVODOPA
     Dosage: 20 MG + 5 MG,?LAST ADMIN DATE:2022
     Route: 050
     Dates: start: 20220510
  12. CARBIDOPA\LEVODOPA [Suspect]
     Active Substance: CARBIDOPA\LEVODOPA
     Dosage: FREQUENCY TEXT: MAIN:11.5CC(8-22)5CC(22-8)CC/H;X:4.5CC
     Route: 050
  13. CARBIDOPA\LEVODOPA [Suspect]
     Active Substance: CARBIDOPA\LEVODOPA
     Dosage: 20 MG + 5 MG,?FREQUENCY TEXT: MORN:20CC;MAINT:3CC/H;EXTRA:1CC
     Route: 050
     Dates: start: 2022, end: 20220616
  14. CARBIDOPA\LEVODOPA [Suspect]
     Active Substance: CARBIDOPA\LEVODOPA
     Dosage: FREQUENCY TEXT: MORN:15.3CC;MAINT:11CC/H;EXTRA:3CC
     Route: 050
  15. CARBIDOPA\LEVODOPA [Suspect]
     Active Substance: CARBIDOPA\LEVODOPA
     Dosage: FREQUENCY TEXT: MAIN:11.5CC(8-22)4.9CC(22-8)CC/H;X:4.5CC
     Route: 050
     Dates: start: 20231106, end: 20231107
  16. CARBIDOPA\LEVODOPA [Suspect]
     Active Substance: CARBIDOPA\LEVODOPA
     Dosage: 20 MG + 5 MG (VIA PEG)?MAIN:10CC(8-22)5CC(22-8)CC/H;X:4.5CC
     Route: 050
     Dates: start: 20231108, end: 20231113
  17. Vigantol [Concomitant]
     Indication: Product used for unknown indication
     Dosage: 5 DROP?FREQUENCY TEXT: AT BREAKFAST?START DATE TEXT: BEFORE DUODOPA
     Route: 048
  18. BENSERAZIDE HYDROCHLORIDE\LEVODOPA [Concomitant]
     Active Substance: BENSERAZIDE HYDROCHLORIDE\LEVODOPA
     Indication: Parkinson^s disease
     Dosage: 1 TABLET?FREQUENCY TEXT: AT BEDTIME
     Route: 048
     Dates: start: 20220617, end: 20220712
  19. BENSERAZIDE HYDROCHLORIDE\LEVODOPA [Concomitant]
     Active Substance: BENSERAZIDE HYDROCHLORIDE\LEVODOPA
     Indication: Parkinson^s disease
     Dosage: 2 TABLET?FREQUENCY TEXT: AT BEDTIME
     Route: 048
     Dates: start: 20220712
  20. SEROQUEL [Concomitant]
     Active Substance: QUETIAPINE FUMARATE
     Indication: Product used for unknown indication
     Dosage: 1 TABLET ?FREQUENCY TEXT: AT DINNER, AT BEDTIME?SEROQUEL SR 50 (QUETIAPINE) ?STARTED BEFORE DUODOPA
     Route: 048
     Dates: start: 20231108
  21. SEROQUEL [Concomitant]
     Active Substance: QUETIAPINE FUMARATE
     Indication: Product used for unknown indication
     Dosage: FIRST ADMIN DATE: NOV 2023,?1 TABLET
     Route: 048
  22. ALPRAZOLAM [Concomitant]
     Active Substance: ALPRAZOLAM
     Indication: Product used for unknown indication
     Dosage: FREQUENCY TEXT: AT 11AM AND 4PM?DRUG STARTED BEFORE DUODOPA?FORM STRENGTH 0.5 MILLIGRAM?2 TABLET
     Route: 048
  23. BISOPROLOL [Concomitant]
     Active Substance: BISOPROLOL\BISOPROLOL FUMARATE
     Indication: Product used for unknown indication
     Dosage: FREQUENCY TEXT: AT LUNCH?BEFORE DUODOPA?FORM STRENGTH 5 MILLIGRAM?0.5 TABLET
     Route: 048
  24. FOLIC ACID [Concomitant]
     Active Substance: FOLIC ACID
     Indication: Product used for unknown indication
     Dosage: FREQUENCY TEXT: AT LUNCH?STARTED BEFORE DUODOPA?STRENGTH 5 MILLIGRAM?1 TABLET
     Route: 048
  25. MIRTAZAPINE [Concomitant]
     Active Substance: MIRTAZAPINE
     Indication: Product used for unknown indication
     Dosage: FREQUENCY TEXT: AT BEDTIME?STRENGTH 45 MILLIGRAM?1 TABLET
     Route: 048
     Dates: start: 20231108
  26. MIRTAZAPINE [Concomitant]
     Active Substance: MIRTAZAPINE
     Indication: Product used for unknown indication
     Dosage: 1 TABLET,?FREQUENCY TEXT: AT BEDTIME,?STRENGTH 45 MILLIGRAM,?STARTED BEFORE DUODOPA
     Route: 048
     Dates: end: 20231108
  27. LORAZEPAM [Concomitant]
     Active Substance: LORAZEPAM
     Indication: Product used for unknown indication
     Dosage: FREQUENCY TEXT: AT BEDTIME?STARTED BEFORE DUODOPA?STRENGTH 2.5 MILLIGRAM?1.5 TABLET
     Route: 048
  28. ATORVASTATIN [Concomitant]
     Active Substance: ATORVASTATIN
     Indication: Product used for unknown indication
     Dosage: FREQUENCY TEXT: AT DINNER?START DATE TEXT: BEFORE DUODOPA?FORM STRENGTH 20 MILLIGRAM?1 TABLET
     Route: 048
  29. PANTOPRAZOLE [Concomitant]
     Active Substance: PANTOPRAZOLE
     Indication: Product used for unknown indication
     Dosage: 1 TABLET?FREQUENCY TEXT: AT FASTING?STARTED BEFORE DUODOPA?STRENGTH 20 MILLIGRAM
     Route: 048
  30. FUROSEMIDE [Concomitant]
     Active Substance: FUROSEMIDE
     Indication: Product used for unknown indication
     Dosage: FREQUENCY TEXT: AT BREAKFAST?STARTED BEFORE DUODOPA?STRENGTH 40 MILLIGRAM?0.5 TABLET
     Route: 048
  31. DOMPERIDONE [Concomitant]
     Active Substance: DOMPERIDONE
     Indication: Product used for unknown indication
     Dosage: 30 MILLILITER?FREQUENCY TEXT: AT THREE MEALS?STARTED BEFORE DUODOPA
     Route: 048
  32. PREGABALIN [Concomitant]
     Active Substance: PREGABALIN
     Indication: Product used for unknown indication
     Dosage: 1 TABLET
     Route: 048
     Dates: start: 202311
  33. ATROVENT [Concomitant]
     Active Substance: IPRATROPIUM BROMIDE
     Indication: Product used for unknown indication
     Dosage: 6 PUFF?START DATE BEFORE DUODOPA
     Dates: end: 202206
  34. ACETYLCYSTEINE [Concomitant]
     Active Substance: ACETYLCYSTEINE
     Indication: Product used for unknown indication
     Dosage: 1 TABLET
     Route: 048
     Dates: start: 20220617, end: 20220619

REACTIONS (13)
  - Gait disturbance [Recovering/Resolving]
  - Speech disorder [Recovering/Resolving]
  - Cough [Recovered/Resolved]
  - Mobility decreased [Recovering/Resolving]
  - Dysstasia [Recovered/Resolved]
  - Bradykinesia [Recovering/Resolving]
  - Anxiety [Recovering/Resolving]
  - Therapeutic product effect delayed [Recovered/Resolved]
  - Weight decreased [Recovering/Resolving]
  - Insomnia [Recovered/Resolved]
  - Eschar [Recovered/Resolved]
  - On and off phenomenon [Recovered/Resolved]
  - Musculoskeletal stiffness [Recovering/Resolving]

NARRATIVE: CASE EVENT DATE: 20220601
